FAERS Safety Report 12625356 (Version 2)
Quarter: 2016Q3

REPORT INFORMATION
  Report Type: Spontaneous
  Country: CN (occurrence: CN)
  Receive Date: 20160805
  Receipt Date: 20160824
  Transmission Date: 20161109
  Serious: Yes (Other)
  Sender: FDA-Public Use
  Company Number: CN-SUN PHARMACEUTICAL INDUSTRIES LTD-2016R1-121568

PATIENT
  Age: 57 Year
  Sex: Female

DRUGS (4)
  1. DOXORUBICIN [Suspect]
     Active Substance: DOXORUBICIN
     Indication: METASTASES TO LUNG
  2. CISPLATIN. [Suspect]
     Active Substance: CISPLATIN
     Indication: METASTASES TO LUNG
     Dosage: DAY 1 TO DAY3
     Route: 065
     Dates: start: 20131117, end: 20140211
  3. DOXORUBICIN [Suspect]
     Active Substance: DOXORUBICIN
     Indication: POORLY DIFFERENTIATED THYROID CARCINOMA
     Dosage: DAY1
     Route: 065
     Dates: start: 20131117, end: 20140211
  4. CISPLATIN. [Suspect]
     Active Substance: CISPLATIN
     Indication: POORLY DIFFERENTIATED THYROID CARCINOMA

REACTIONS (2)
  - Bone marrow failure [Recovered/Resolved]
  - Palmar-plantar erythrodysaesthesia syndrome [Recovered/Resolved]
